FAERS Safety Report 8364930-0 (Version None)
Quarter: 2012Q2

REPORT INFORMATION
  Report Type: 
  Country: None (occurrence: None)
  Receive Date: 20120514
  Receipt Date: 20120418
  Transmission Date: 20120825
  Serious: Yes (Other)
  Sender: FDA-Public Use
  Company Number: JPI-P-014323

PATIENT
  Age: 11 Year
  Sex: Male

DRUGS (7)
  1. MAZINDOL [Concomitant]
  2. VENLAFAXINE HYDROCHLORIDE [Concomitant]
  3. XYREM [Suspect]
     Indication: CATAPLEXY
     Dosage: 1.5;4.5;5 GM (1.5 GM, 1 IN 1 D), ORAL
     Route: 048
     Dates: start: 20110324, end: 20120131
  4. XYREM [Suspect]
     Indication: CATAPLEXY
     Dosage: 1.5;4.5;5 GM (1.5 GM, 1 IN 1 D), ORAL
     Route: 048
     Dates: start: 20110307, end: 20110315
  5. XYREM [Suspect]
     Indication: CATAPLEXY
     Dosage: 1.5;4.5;5 GM (1.5 GM, 1 IN 1 D), ORAL
     Route: 048
     Dates: start: 20110215, end: 20110303
  6. XYREM [Suspect]
     Indication: CATAPLEXY
     Dosage: 1.5;4.5;5 GM (1.5 GM, 1 IN 1 D), ORAL
     Route: 048
     Dates: start: 20110304, end: 20110305
  7. XYREM [Suspect]
     Indication: CATAPLEXY
     Dosage: 1.5;4.5;5 GM (1.5 GM, 1 IN 1 D), ORAL
     Route: 048
     Dates: start: 20120201

REACTIONS (21)
  - NAUSEA [None]
  - ABDOMINAL PAIN [None]
  - SOMNOLENCE [None]
  - NIGHTMARE [None]
  - DEPRESSION [None]
  - POOR QUALITY SLEEP [None]
  - URTICARIA [None]
  - AGITATION [None]
  - AGGRESSION [None]
  - HEADACHE [None]
  - VOMITING [None]
  - RESTLESSNESS [None]
  - CRYING [None]
  - AORTIC VALVE SCLEROSIS [None]
  - FATIGUE [None]
  - NERVOUS SYSTEM DISORDER [None]
  - GASTROINTESTINAL DISORDER [None]
  - BULIMIA NERVOSA [None]
  - HUNGER [None]
  - SUICIDAL IDEATION [None]
  - CARDIAC MURMUR [None]
